FAERS Safety Report 23214204 (Version 1)
Quarter: 2023Q4

REPORT INFORMATION
  Report Type: Spontaneous
  Country: US (occurrence: None)
  Receive Date: 20231121
  Receipt Date: 20231121
  Transmission Date: 20240110
  Serious: Yes (Hospitalization)
  Sender: FDA-Public Use
  Company Number: None

PATIENT
  Age: 66 Year
  Sex: Female

DRUGS (1)
  1. GAMMAGARD LIQUID [Suspect]
     Active Substance: HUMAN IMMUNOGLOBULIN G
     Dosage: OTHER FREQUENCY : WEEKLY;?
     Route: 042
     Dates: start: 20231121, end: 20231121

REACTIONS (4)
  - Feeling abnormal [None]
  - Hemiparesis [None]
  - Cerebrovascular accident [None]
  - Infusion related reaction [None]

NARRATIVE: CASE EVENT DATE: 20231121
